FAERS Safety Report 8958467 (Version 1)
Quarter: 2012Q4

REPORT INFORMATION
  Report Type: Spontaneous
  Country: US (occurrence: None)
  Receive Date: 20121205
  Receipt Date: 20121205
  Transmission Date: 20130627
  Serious: Yes (Life-Threatening, Hospitalization)
  Sender: FDA-Public Use
  Company Number: None

PATIENT
  Age: 55 Year
  Sex: Male
  Weight: 133.8 kg

DRUGS (2)
  1. PRAVASTATIN [Suspect]
     Indication: HYPERLIPIDEMIA
     Route: 048
     Dates: start: 20121004, end: 20121009
  2. GEMFIBROZIL [Suspect]
     Route: 048
     Dates: start: 20121004, end: 20121009

REACTIONS (8)
  - Renal failure acute [None]
  - Rhabdomyolysis [None]
  - Hyperthermia malignant [None]
  - Fluid overload [None]
  - Aspiration [None]
  - Respiratory failure [None]
  - Septic shock [None]
  - Cardiogenic shock [None]
